FAERS Safety Report 6750611-3 (Version None)
Quarter: 2010Q2

REPORT INFORMATION
  Report Type: 
  Country: None (occurrence: None)
  Receive Date: 20100527
  Receipt Date: 20100512
  Transmission Date: 20101027
  Serious: Yes (Other)
  Sender: FDA-Public Use
  Company Number: ES-1181876

PATIENT
  Age: 83 Year
  Sex: Female

DRUGS (1)
  1. SYSTANE (RHINARIE) EYE DROPS [Suspect]
     Indication: ULCERATIVE KERATITIS
     Dosage: ONE DROP EVERY 2 HOURS  OPHTHALMIC
     Route: 047
     Dates: start: 20100423, end: 20100426

REACTIONS (3)
  - BLINDNESS [None]
  - CORNEAL DEPOSITS [None]
  - VISUAL ACUITY REDUCED [None]
